FAERS Safety Report 8277317-6 (Version None)
Quarter: 2012Q2

REPORT INFORMATION
  Report Type: 
  Country: None (occurrence: None)
  Receive Date: 20120412
  Receipt Date: 20120404
  Transmission Date: 20120825
  Serious: Yes (Hospitalization)
  Sender: FDA-Public Use
  Company Number: JP-GLAXOSMITHKLINE-B0791361A

PATIENT
  Sex: Female

DRUGS (3)
  1. MUCODYNE [Concomitant]
     Route: 048
     Dates: start: 20120322
  2. FLUTICASONE PROPIONATE/SALMETEROL [Suspect]
     Indication: ASTHMA
     Dosage: 20IUAX PER DAY
     Route: 055
     Dates: start: 20120322
  3. ZITHROMAX [Concomitant]
     Route: 048
     Dates: start: 20120322

REACTIONS (4)
  - TREMOR [None]
  - HEART RATE INCREASED [None]
  - OVERDOSE [None]
  - PALPITATIONS [None]
